FAERS Safety Report 10245684 (Version 3)
Quarter: 2014Q3

REPORT INFORMATION
  Report Type: Spontaneous
  Country: US (occurrence: US)
  Receive Date: 20140619
  Receipt Date: 20140724
  Transmission Date: 20150326
  Serious: Yes (Hospitalization, Disabling, Other)
  Sender: FDA-Public Use
  Company Number: US-MERCK-1406USA008695

PATIENT
  Age: 66 Year
  Sex: Male
  Weight: 101.59 kg

DRUGS (2)
  1. METFORMIN [Concomitant]
     Active Substance: METFORMIN HYDROCHLORIDE
     Dosage: UNK
  2. JANUVIA [Suspect]
     Active Substance: SITAGLIPTIN PHOSPHATE
     Indication: DIABETES MELLITUS
     Dosage: 100 MG ALONE OR COMBINED WITH METFORMIN
     Route: 048
     Dates: start: 201002, end: 201312

REACTIONS (12)
  - Chemotherapy [Unknown]
  - Pancreaticojejunostomy [Recovered/Resolved]
  - Ductal adenocarcinoma of pancreas [Not Recovered/Not Resolved]
  - Cholecystectomy [Recovered/Resolved]
  - Cholecystitis chronic [Recovered/Resolved]
  - Hepaticojejunostomy [Recovered/Resolved]
  - Pancreaticoduodenectomy [Recovered/Resolved]
  - Abdominal operation [Recovered/Resolved]
  - Gastroenterostomy [Recovered/Resolved]
  - Explorative laparotomy [Recovered/Resolved]
  - Radiotherapy [Unknown]
  - Metastases to lymph nodes [Unknown]

NARRATIVE: CASE EVENT DATE: 2013
